FAERS Safety Report 25112408 (Version 1)
Quarter: 2025Q1

REPORT INFORMATION
  Report Type: Spontaneous
  Country: GB (occurrence: GB)
  Receive Date: 20250324
  Receipt Date: 20250324
  Transmission Date: 20250409
  Serious: Yes (Other)
  Sender: MYLAN
  Company Number: GB-MYLANLABS-2025M1019668

PATIENT
  Sex: Male

DRUGS (1)
  1. CLOZAPINE [Suspect]
     Active Substance: CLOZAPINE
     Indication: Schizophrenia
     Dates: start: 20220816, end: 20250227

REACTIONS (4)
  - Type 2 diabetes mellitus [Unknown]
  - Orthostatic hypotension [Unknown]
  - Sedation [Unknown]
  - Drug ineffective [Unknown]
